FAERS Safety Report 16331974 (Version 1)
Quarter: 2019Q2

REPORT INFORMATION
  Report Type: Spontaneous
  Country: US (occurrence: US)
  Receive Date: 20190518
  Receipt Date: 20190518
  Transmission Date: 20190711
  Serious: Yes (Hospitalization, Disabling)
  Sender: FDA-Public Use
  Company Number: None

PATIENT
  Age: 60 Year
  Sex: Female
  Weight: 67.5 kg

DRUGS (4)
  1. AMBIEN [Concomitant]
     Active Substance: ZOLPIDEM TARTRATE
  2. LOSARTAN. [Concomitant]
     Active Substance: LOSARTAN
  3. CIPROFLOXIN 500MG [Suspect]
     Active Substance: CIPROFLOXACIN
     Indication: DIVERTICULITIS
     Dosage: ?          QUANTITY:16 TABLET(S);?
     Route: 048
     Dates: start: 20171217, end: 20171220
  4. HYDROCHLOROTHIAZIDE. [Concomitant]
     Active Substance: HYDROCHLOROTHIAZIDE

REACTIONS (24)
  - Feeling abnormal [None]
  - Middle insomnia [None]
  - Suicide attempt [None]
  - Arthritis [None]
  - Insomnia [None]
  - Gait inability [None]
  - Fatigue [None]
  - Neuralgia [None]
  - Arthralgia [None]
  - Gastrointestinal disorder [None]
  - Weight decreased [None]
  - Arthropathy [None]
  - Failure to thrive [None]
  - Balance disorder [None]
  - Paraesthesia [None]
  - Bedridden [None]
  - Tendon injury [None]
  - Depression [None]
  - Loss of personal independence in daily activities [None]
  - Impaired driving ability [None]
  - Wheelchair user [None]
  - Memory impairment [None]
  - Anxiety [None]
  - Dyspepsia [None]

NARRATIVE: CASE EVENT DATE: 20171217
